FAERS Safety Report 5328805-3 (Version None)
Quarter: 2007Q2

REPORT INFORMATION
  Report Type: 
  Country: None (occurrence: None)
  Receive Date: 20070518
  Receipt Date: 20070510
  Transmission Date: 20071010
  Serious: Yes (Other)
  Sender: FDA-Public Use
  Company Number: JP-MERCK-0704USA01783

PATIENT
  Age: 86 Year
  Sex: Female
  Weight: 56 kg

DRUGS (9)
  1. FOSAMAX [Suspect]
     Indication: OSTEOPOROSIS
     Route: 048
     Dates: start: 20070307, end: 20070307
  2. NU-LOTAN [Concomitant]
     Indication: HYPERTENSION
     Route: 048
     Dates: start: 20040123
  3. THYRADIN [Concomitant]
     Indication: AUTOIMMUNE THYROIDITIS
     Route: 048
     Dates: start: 20051216
  4. AZUNOL [Concomitant]
     Indication: ECZEMA
     Route: 061
     Dates: start: 20060317
  5. VOALLA [Concomitant]
     Route: 061
     Dates: start: 20060317
  6. YODEL S [Concomitant]
     Indication: CONSTIPATION
     Route: 065
     Dates: start: 20060905
  7. MAGLAX [Concomitant]
     Route: 065
  8. CHINESE LOVAGE AND CHINESE PEONY AND DONG QUAI AND REHMANNIA, COOKED [Concomitant]
     Route: 065
  9. ASTRAGALUS AND BAI ZHU ATRACTYLODES AND BUPLEURUM AND CHINESE CIMICIFU [Concomitant]
     Route: 065

REACTIONS (2)
  - CHILLS [None]
  - HEAD TITUBATION [None]
